FAERS Safety Report 11540524 (Version 1)
Quarter: 2015Q3

REPORT INFORMATION
  Report Type: Spontaneous
  Country: US (occurrence: US)
  Receive Date: 20150923
  Receipt Date: 20150923
  Transmission Date: 20151125
  Serious: No
  Sender: FDA-Public Use
  Company Number: US-BEH-2015049063

PATIENT
  Sex: Female
  Weight: 49 kg

DRUGS (15)
  1. PEPCID [Concomitant]
     Active Substance: FAMOTIDINE
  2. PROBIOTIC [Concomitant]
     Active Substance: PROBIOTICS NOS
     Dosage: 10 B CELL
  3. PRIVIGEN [Suspect]
     Active Substance: HUMAN IMMUNOGLOBULIN G
     Indication: AUTOIMMUNE HAEMOLYTIC ANAEMIA
     Dosage: 20 G
     Route: 042
  4. RITUXAN [Concomitant]
     Active Substance: RITUXIMAB
     Dosage: 10 MG/ML VIAL
  5. DIPHENHYDRAMINE. [Concomitant]
     Active Substance: DIPHENHYDRAMINE
  6. SODIUM CHLORIDE. [Concomitant]
     Active Substance: SODIUM CHLORIDE
     Dosage: 0.9%
  7. DAPSONE. [Concomitant]
     Active Substance: DAPSONE
  8. EPIPEN [Concomitant]
     Active Substance: EPINEPHRINE
  9. IMMUNITY FORMULA 1 [Concomitant]
  10. ACETAMINOPHEN. [Concomitant]
     Active Substance: ACETAMINOPHEN
  11. SOLU-MEDROL [Concomitant]
     Active Substance: METHYLPREDNISOLONE SODIUM SUCCINATE
     Dosage: 2 ML VIAL
  12. PREDNISONE. [Concomitant]
     Active Substance: PREDNISONE
  13. MULTIVITAMINS [Concomitant]
     Active Substance: VITAMINS
  14. ACYCLOVIR. [Concomitant]
     Active Substance: ACYCLOVIR
  15. VITAMINS [Concomitant]
     Active Substance: VITAMINS

REACTIONS (1)
  - Infusion site bruising [Unknown]
